FAERS Safety Report 16883387 (Version 2)
Quarter: 2019Q4

REPORT INFORMATION
  Report Type: Report from Study
  Country: AU (occurrence: AU)
  Receive Date: 20191004
  Receipt Date: 20191021
  Transmission Date: 20200122
  Serious: Yes (Hospitalization)
  Sender: FDA-Public Use
  Company Number: AU-BIOGEN-2019BI00758007

PATIENT
  Age: 48 Year
  Sex: Male
  Weight: 78 kg

DRUGS (1)
  1. TYSABRI [Suspect]
     Active Substance: NATALIZUMAB
     Indication: MULTIPLE SCLEROSIS
     Dosage: INFUSED OVER 1 HOUR
     Route: 042
     Dates: start: 20130101, end: 20190906

REACTIONS (3)
  - Staphylococcal abscess [Recovered/Resolved]
  - Umbilical hernia [Unknown]
  - Wound infection staphylococcal [Unknown]

NARRATIVE: CASE EVENT DATE: 201611
